FAERS Safety Report 24128433 (Version 1)
Quarter: 2024Q3

REPORT INFORMATION
  Report Type: Spontaneous
  Country: US (occurrence: None)
  Receive Date: 20240722
  Receipt Date: 20240722
  Transmission Date: 20241017
  Serious: No
  Sender: Public
  Company Number: None

PATIENT
  Sex: 0

DRUGS (1)
  1. OCREVUS [Suspect]
     Active Substance: OCRELIZUMAB

REACTIONS (6)
  - Palpitations [None]
  - Chest pain [None]
  - Arthralgia [None]
  - Paraesthesia oral [None]
  - Needle issue [None]
  - Vein rupture [None]
